FAERS Safety Report 8279273-3 (Version None)
Quarter: 2012Q2

REPORT INFORMATION
  Report Type: 
  Country: None (occurrence: None)
  Receive Date: 20120412
  Receipt Date: 20120329
  Transmission Date: 20120825
  Serious: Yes (Other)
  Sender: FDA-Public Use
  Company Number: US-ROCHE-1055752

PATIENT
  Sex: Female

DRUGS (2)
  1. COPEGUS [Suspect]
     Indication: HEPATITIS C
     Dosage: UNKNOWN
     Route: 065
  2. PEGINTERFERON ALFA-2A [Suspect]
     Indication: HEPATITIS C
     Dosage: UNKNOWN
     Route: 065

REACTIONS (11)
  - ASTHENIA [None]
  - CONFUSIONAL STATE [None]
  - DRUG EFFECT DECREASED [None]
  - CEREBROVASCULAR ACCIDENT [None]
  - FALL [None]
  - PYREXIA [None]
  - CYSTITIS [None]
  - DIZZINESS [None]
  - INSOMNIA [None]
  - SUBDURAL HAEMATOMA [None]
  - HEPATITIS C [None]
